FAERS Safety Report 6949931-9 (Version None)
Quarter: 2010Q3

REPORT INFORMATION
  Report Type: 
  Country: None (occurrence: None)
  Receive Date: 20100828
  Receipt Date: 20100118
  Transmission Date: 20110219
  Serious: No
  Sender: FDA-Public Use
  Company Number: US-ABBOTT-10P-163-0620755-00

PATIENT
  Sex: Female
  Weight: 70.37 kg

DRUGS (3)
  1. NIASPAN [Suspect]
     Indication: BLOOD CHOLESTEROL INCREASED
     Dates: start: 20091218, end: 20100118
  2. NIASPAN [Suspect]
     Dates: start: 20100118
  3. SYNTHROID [Concomitant]
     Indication: THYROID DISORDER

REACTIONS (1)
  - BLOOD TRIGLYCERIDES INCREASED [None]
